FAERS Safety Report 8990438 (Version 1)
Quarter: 2012Q4

REPORT INFORMATION
  Report Type: Report from Study
  Country: US (occurrence: US)
  Receive Date: 20121228
  Receipt Date: 20121228
  Transmission Date: 20130627
  Serious: Yes (Life-Threatening, Hospitalization)
  Sender: FDA-Public Use
  Company Number: US-TEVA-377747USA

PATIENT
  Age: 41 Year
  Sex: Male
  Weight: 89.9 kg

DRUGS (13)
  1. MERCAPTOPURINE [Suspect]
     Indication: COLITIS ULCERATIVE
     Dosage: 50 Milligram Daily;
     Route: 048
     Dates: start: 20120106, end: 20120811
  2. PLACEBO [Suspect]
     Indication: COLITIS ULCERATIVE
     Dates: start: 20120614, end: 20120614
  3. LIALDA [Concomitant]
     Dates: start: 20120127
  4. HYDROCORTISONE [Concomitant]
     Dates: start: 20120807, end: 20120807
  5. LOMOTIL [Concomitant]
     Dates: start: 20120803
  6. PROPOFOL [Concomitant]
     Dates: start: 20120807, end: 20120807
  7. DEXTRAN [Concomitant]
     Indication: PREMEDICATION
  8. COFOPIME [Concomitant]
  9. NEUPOGEN [Concomitant]
  10. HYDROCORTISONE [Concomitant]
  11. MAGNESIUM SULFATE [Concomitant]
  12. PROTONIX [Concomitant]
  13. VANCOMYCIN [Concomitant]

REACTIONS (1)
  - Pancytopenia [Recovered/Resolved]
